FAERS Safety Report 16907796 (Version 3)
Quarter: 2020Q4

REPORT INFORMATION
  Report Type: Report from Study
  Country: US (occurrence: US)
  Receive Date: 20191011
  Receipt Date: 20201109
  Transmission Date: 20210113
  Serious: Yes (Hospitalization, Other)
  Sender: FDA-Public Use
  Company Number: US-ROCHE-2321318

PATIENT
  Age: 59 Year
  Sex: Female
  Weight: 68 kg

DRUGS (5)
  1. PREDNISONE. [Concomitant]
     Active Substance: PREDNISONE
     Route: 065
  2. ATEZOLIZUMAB. [Suspect]
     Active Substance: ATEZOLIZUMAB
     Route: 042
     Dates: start: 20190318
  3. ATEZOLIZUMAB. [Suspect]
     Active Substance: ATEZOLIZUMAB
     Indication: ADENOCARCINOMA OF THE CERVIX
     Dosage: LAST DOSE PRIOR TO ONSET OF EVENT:25/FEB/2019
     Route: 042
     Dates: start: 20190225
  4. CISPLATIN. [Suspect]
     Active Substance: CISPLATIN
     Indication: ADENOCARCINOMA OF THE CERVIX
     Dosage: LAST DOSE PRIOR TO ONSET OF EVENT:29/MAR/2019
     Route: 065
     Dates: start: 20190225
  5. METHYLPREDNISOLONE. [Concomitant]
     Active Substance: METHYLPREDNISOLONE
     Route: 065

REACTIONS (4)
  - Hypocalcaemia [Unknown]
  - Spinal compression fracture [Recovering/Resolving]
  - Diarrhoea [Recovering/Resolving]
  - Hypomagnesaemia [Unknown]

NARRATIVE: CASE EVENT DATE: 20190304
